FAERS Safety Report 6280143-0 (Version None)
Quarter: 2009Q3

REPORT INFORMATION
  Report Type: 
  Country: None (occurrence: None)
  Receive Date: 20090723
  Receipt Date: 20090713
  Transmission Date: 20100115
  Serious: Yes (Hospitalization)
  Sender: FDA-Public Use
  Company Number: PHHY2009GB29455

PATIENT
  Sex: Male

DRUGS (2)
  1. CLOZARIL [Suspect]
     Indication: SCHIZOPHRENIA
     Dosage: UNK
     Dates: start: 19930701, end: 20090701
  2. CLOZARIL [Suspect]
     Dosage: 12.5 MG, UNK
     Dates: start: 20090713

REACTIONS (2)
  - CONFUSIONAL STATE [None]
  - DEHYDRATION [None]
